FAERS Safety Report 6699512-X (Version None)
Quarter: 2010Q2

REPORT INFORMATION
  Report Type: 
  Country: None (occurrence: None)
  Receive Date: 20100427
  Receipt Date: 20100427
  Transmission Date: 20101027
  Serious: Yes (Hospitalization)
  Sender: FDA-Public Use
  Company Number: None

PATIENT
  Sex: Female
  Weight: 99.7913 kg

DRUGS (1)
  1. LEVAQUIN [Suspect]
     Indication: BRONCHITIS
     Dosage: 500 MG  ONCE PO
     Route: 048
     Dates: start: 20100414, end: 20100423

REACTIONS (7)
  - APPARENT DEATH [None]
  - ASTHENIA [None]
  - COLD SWEAT [None]
  - ELECTROCARDIOGRAM ABNORMAL [None]
  - HEART RATE INCREASED [None]
  - IMPAIRED WORK ABILITY [None]
  - RESPIRATORY DISTRESS [None]
